FAERS Safety Report 18382171 (Version 1)
Quarter: 2020Q4

REPORT INFORMATION
  Report Type: Spontaneous
  Country: US (occurrence: US)
  Receive Date: 20201013
  Receipt Date: 20201013
  Transmission Date: 20210114
  Serious: Yes (Life-Threatening, Hospitalization, Disabling, Other)
  Sender: FDA-Public Use
  Company Number: None

PATIENT

DRUGS (4)
  1. TRIMETHOPRIM. [Suspect]
     Active Substance: TRIMETHOPRIM
  2. SEPTRA DS [Suspect]
     Active Substance: SULFAMETHOXAZOLE\TRIMETHOPRIM
  3. SULFAMETHOXAZOLE [Suspect]
     Active Substance: SULFAMETHOXAZOLE
     Indication: CELLULITIS
     Dosage: ?          OTHER STRENGTH:800-160MG;QUANTITY:1 TABLET;?
     Route: 048
     Dates: start: 20200906, end: 20200920
  4. BACTRIM DS [Suspect]
     Active Substance: SULFAMETHOXAZOLE\TRIMETHOPRIM

REACTIONS (4)
  - Pneumonia [None]
  - Pyrexia [None]
  - Stevens-Johnson syndrome [None]
  - Swelling face [None]

NARRATIVE: CASE EVENT DATE: 20200921
